FAERS Safety Report 4992124-5 (Version None)
Quarter: 2006Q2

REPORT INFORMATION
  Report Type: 
  Country: None (occurrence: None)
  Receive Date: 20060502
  Receipt Date: 20060418
  Transmission Date: 20061013
  Serious: Yes (Death)
  Sender: FDA-Public Use
  Company Number: TAP2006Q00758

PATIENT
  Age: 79 Year
  Sex: Male

DRUGS (7)
  1. LUPRON DEPOT-3 [Suspect]
     Indication: PROSTATE CANCER
     Dosage: 22.5 MG, 1 IN 3 M, INTRAMUSCULAR
     Route: 030
     Dates: start: 20060130
  2. OXYCONTIN [Concomitant]
  3. DOCUSATE SODIUM (DOCUSATE SODIUM) [Concomitant]
  4. SENOKOT (SENNA ALEXANDRINA) [Concomitant]
  5. MISOPROSTOL [Concomitant]
  6. GRAVOL TAB [Concomitant]
  7. PREDNISONE TAB [Concomitant]

REACTIONS (1)
  - DEATH [None]
